FAERS Safety Report 9271632 (Version 1)
Quarter: 2013Q2

REPORT INFORMATION
  Report Type: Spontaneous
  Country: FR (occurrence: FR)
  Receive Date: 20130506
  Receipt Date: 20130506
  Transmission Date: 20140414
  Serious: Yes (Other)
  Sender: FDA-Public Use
  Company Number: FR-VERTEX PHARMACEUTICALS INC-2013-005717

PATIENT
  Sex: 0

DRUGS (7)
  1. INCIVO [Suspect]
     Indication: HEPATITIS C
     Dosage: 750 MG, TID
     Route: 048
  2. RIBAVIRIN [Suspect]
     Indication: CRYOGLOBULINAEMIA
     Dosage: UNK, QD
     Route: 048
  3. RIBAVIRIN [Suspect]
     Indication: HEPATITIS C
     Dosage: DOSAGE FORM: UNSPECIFIED, 600-1200 MG
     Route: 048
  4. PEGINTERFERON ALFA [Suspect]
     Indication: CRYOGLOBULINAEMIA
     Dosage: UNK UNK, QW
     Route: 058
  5. PEGINTERFERON ALFA [Suspect]
     Indication: HEPATITIS C
  6. PREDNISONE [Concomitant]
     Indication: PRODUCT USED FOR UNKNOWN INDICATION
     Dosage: DOSAGE FORM: UNSPECIFIED
     Route: 065
  7. RITUXIMAB [Concomitant]
     Indication: NON-HODGKIN^S LYMPHOMA
     Dosage: DOSAGE FORM: UNSPECIFIED
     Route: 065

REACTIONS (14)
  - Neutropenia [Unknown]
  - Breast abscess [Unknown]
  - Cholecystitis [Unknown]
  - Thrombocytopenia [Unknown]
  - Anaemia [Unknown]
  - Toxic skin eruption [Unknown]
  - Bronchopneumopathy [Unknown]
  - Depression [Unknown]
  - Tooth abscess [Unknown]
  - Ear infection [Unknown]
  - Urinary tract infection [Unknown]
  - Pruritus [Unknown]
  - Nausea [Unknown]
  - Drug ineffective [Unknown]
